FAERS Safety Report 25514861 (Version 1)
Quarter: 2025Q3

REPORT INFORMATION
  Report Type: Spontaneous
  Country: US (occurrence: US)
  Receive Date: 20250703
  Receipt Date: 20250703
  Transmission Date: 20251021
  Serious: No
  Sender: RADIUS PHARM
  Company Number: US-RADIUS HEALTH, INC.-2023US005403

PATIENT
  Sex: Female

DRUGS (1)
  1. TYMLOS [Suspect]
     Active Substance: ABALOPARATIDE
     Indication: Senile osteoporosis
     Route: 058

REACTIONS (11)
  - Abdominal distension [Unknown]
  - Injection site swelling [Unknown]
  - Product dose omission issue [Unknown]
  - Abdominal pain upper [Unknown]
  - Dizziness [Unknown]
  - Condition aggravated [Unknown]
  - Increased tendency to bruise [Unknown]
  - Respiratory tract infection [Unknown]
  - Malaise [Unknown]
  - Swelling [Unknown]
  - Dysuria [Unknown]
